FAERS Safety Report 10528217 (Version 2)
Quarter: 2015Q1

REPORT INFORMATION
  Report Type: Spontaneous
  Country: IT (occurrence: IT)
  Receive Date: 20141020
  Receipt Date: 20150203
  Transmission Date: 20150720
  Serious: Yes (Hospitalization)
  Sender: FDA-Public Use
  Company Number: IT-SA-2014SA142187

PATIENT
  Age: 88 Year
  Sex: Female

DRUGS (7)
  1. LASIX [Suspect]
     Active Substance: FUROSEMIDE
     Route: 065
     Dates: start: 20140101, end: 20140709
  2. CRESTOR [Concomitant]
     Active Substance: ROSUVASTATIN CALCIUM
     Dosage: STRENGTH: 10 MG
  3. DRAMION [Concomitant]
     Active Substance: GLICLAZIDE
     Dosage: STRENGTH:30 MG MODIFIED
  4. ACTOS [Concomitant]
     Active Substance: PIOGLITAZONE HYDROCHLORIDE
     Dosage: STRENGTH:15 MG
     Route: 048
  5. OLPRESS [Suspect]
     Active Substance: OLMESARTAN MEDOXOMIL
     Dosage: STRENGTH: 10MG
     Route: 065
     Dates: start: 20140101, end: 20140709
  6. PLAVIX [Concomitant]
     Active Substance: CLOPIDOGREL BISULFATE
     Dosage: STRENGTH: 75 MG
  7. PLENDIL [Suspect]
     Active Substance: FELODIPINE
     Route: 065
     Dates: start: 20140101, end: 20140709

REACTIONS (1)
  - Syncope [Recovered/Resolved]

NARRATIVE: CASE EVENT DATE: 20140709
